FAERS Safety Report 7384127-0 (Version None)
Quarter: 2011Q1

REPORT INFORMATION
  Report Type: 
  Country: None (occurrence: None)
  Receive Date: 20110330
  Receipt Date: 20110323
  Transmission Date: 20110831
  Serious: Yes (Hospitalization)
  Sender: FDA-Public Use
  Company Number: A0919566A

PATIENT
  Age: 66 Year
  Sex: Male

DRUGS (4)
  1. ASPIRIN [Concomitant]
  2. THYROID MEDICATION [Concomitant]
  3. PLAVIX [Concomitant]
  4. ADVAIR DISKUS 100/50 [Suspect]
     Indication: CHRONIC OBSTRUCTIVE PULMONARY DISEASE
     Dosage: 1PUFF TWICE PER DAY
     Route: 055
     Dates: start: 20070101, end: 20080101

REACTIONS (3)
  - PANCREATITIS [None]
  - DRUG INEFFECTIVE [None]
  - DYSPNOEA [None]
